FAERS Safety Report 16903720 (Version 1)
Quarter: 2019Q4

REPORT INFORMATION
  Report Type: Spontaneous
  Country: US (occurrence: US)
  Receive Date: 20191010
  Receipt Date: 20191010
  Transmission Date: 20200122
  Serious: Yes (Hospitalization)
  Sender: FDA-Public Use
  Company Number: US-PFIZER INC-2018321157

PATIENT
  Age: 87 Year
  Sex: Male
  Weight: 93.89 kg

DRUGS (2)
  1. REVATIO [Suspect]
     Active Substance: SILDENAFIL CITRATE
     Dosage: 20 MG, 2X/DAY
     Route: 048
  2. REVATIO [Suspect]
     Active Substance: SILDENAFIL CITRATE
     Indication: PULMONARY ARTERIAL HYPERTENSION
     Dosage: 40 MG, 3X/DAY (TWO 20MG TABLETS THREE TIMES A DAY)
     Route: 048
     Dates: end: 201903

REACTIONS (3)
  - Off label use [Unknown]
  - Dyspnoea [Recovering/Resolving]
  - Product use issue [Unknown]
